FAERS Safety Report 5425679-7 (Version None)
Quarter: 2007Q3

REPORT INFORMATION
  Report Type: 
  Country: None (occurrence: None)
  Receive Date: 20070824
  Receipt Date: 20070814
  Transmission Date: 20080115
  Serious: Yes (Hospitalization, Other)
  Sender: FDA-Public Use
  Company Number: US-PFIZER INC-2007068389

PATIENT
  Sex: Male
  Weight: 87.1 kg

DRUGS (5)
  1. SUTENT [Suspect]
     Indication: RENAL CELL CARCINOMA STAGE UNSPECIFIED
  2. HYDROCHLOROTHIAZIDE [Concomitant]
  3. PLAVIX [Concomitant]
  4. ZANTAC 150 [Concomitant]
  5. QVAR 40 [Concomitant]

REACTIONS (4)
  - BLOOD AMYLASE INCREASED [None]
  - COAGULOPATHY [None]
  - HEPATIC FAILURE [None]
  - LIPASE INCREASED [None]
